FAERS Safety Report 21389621 (Version 1)
Quarter: 2022Q3

REPORT INFORMATION
  Report Type: Spontaneous
  Country: ES (occurrence: ES)
  Receive Date: 20220929
  Receipt Date: 20220929
  Transmission Date: 20221026
  Serious: Yes (Other)
  Sender: FDA-Public Use
  Company Number: ES-AEMPS-1262488

PATIENT
  Age: 80 Year
  Sex: Female

DRUGS (1)
  1. ERTAPENEM [Suspect]
     Active Substance: ERTAPENEM
     Indication: Infection
     Dosage: 2 GRAM, ONCE A DAY (1 G AT 8 A.M. AND AT 4 P.M.)
     Route: 042
     Dates: start: 20210212, end: 20210215

REACTIONS (3)
  - General physical health deterioration [Unknown]
  - Depressed level of consciousness [Unknown]
  - Product prescribing error [Recovered/Resolved]

NARRATIVE: CASE EVENT DATE: 20210212
